FAERS Safety Report 7546457-9 (Version None)
Quarter: 2011Q2

REPORT INFORMATION
  Report Type: 
  Country: None (occurrence: None)
  Receive Date: 20110607
  Receipt Date: 20110523
  Transmission Date: 20111010
  Serious: Yes (Hospitalization, Other)
  Sender: FDA-Public Use
  Company Number: 2011MA006328

PATIENT
  Age: 23 Year
  Sex: Male

DRUGS (1)
  1. BUPROPION HCL [Suspect]
     Indication: OVERDOSE
     Dosage: 5700 MG;1X

REACTIONS (14)
  - BRUXISM [None]
  - DYSARTHRIA [None]
  - INTENTION TREMOR [None]
  - ATAXIA [None]
  - DRUG HALF-LIFE INCREASED [None]
  - NERVOUS SYSTEM DISORDER [None]
  - PAST-POINTING [None]
  - BLOOD POTASSIUM DECREASED [None]
  - HYPOGLYCAEMIA [None]
  - CEREBELLAR SYNDROME [None]
  - HEART RATE INCREASED [None]
  - GRAND MAL CONVULSION [None]
  - HALLUCINATIONS, MIXED [None]
  - OVERDOSE [None]
